FAERS Safety Report 25101371 (Version 1)
Quarter: 2025Q1

REPORT INFORMATION
  Report Type: Report from Study
  Country: US (occurrence: US)
  Receive Date: 20250320
  Receipt Date: 20250320
  Transmission Date: 20250409
  Serious: Yes (Hospitalization, Other)
  Sender: GILEAD
  Company Number: US-GILEAD-2025-0707895

PATIENT
  Age: 14 Year
  Sex: Female

DRUGS (1)
  1. AZTREONAM LYSINE [Suspect]
     Active Substance: AZTREONAM LYSINE
     Indication: Cystic fibrosis lung
     Dosage: 75 MG, TID (INHALE ONE VIAL (75 MG) VIA ALTERA NEBULIZER THREE TIMES DAILY ALTERNATING MONTHS)
     Route: 055
     Dates: start: 20201230

REACTIONS (1)
  - Infective pulmonary exacerbation of cystic fibrosis [Unknown]
